FAERS Safety Report 16308296 (Version 2)
Quarter: 2019Q2

REPORT INFORMATION
  Report Type: Report from Study
  Country: BR (occurrence: BR)
  Receive Date: 20190514
  Receipt Date: 20190621
  Transmission Date: 20190711
  Serious: Yes (Other)
  Sender: FDA-Public Use
  Company Number: PHHY2019BR086272

PATIENT
  Age: 61 Year
  Sex: Female

DRUGS (2)
  1. COSENTYX [Suspect]
     Active Substance: SECUKINUMAB
     Dosage: UNK
     Route: 065
     Dates: start: 20190506
  2. COSENTYX [Suspect]
     Active Substance: SECUKINUMAB
     Indication: PRODUCT USED FOR UNKNOWN INDICATION
     Dosage: UNK
     Route: 065
     Dates: start: 20190408

REACTIONS (11)
  - Injection site pain [Recovered/Resolved]
  - Visual impairment [Unknown]
  - Somnolence [Not Recovered/Not Resolved]
  - Injection site haemorrhage [Recovered/Resolved]
  - Muscular weakness [Unknown]
  - Diabetes mellitus [Unknown]
  - Sluggishness [Unknown]
  - Malaise [Unknown]
  - Fatigue [Unknown]
  - Product storage error [Unknown]
  - Injection site discolouration [Not Recovered/Not Resolved]

NARRATIVE: CASE EVENT DATE: 20190408
